FAERS Safety Report 18908710 (Version 1)
Quarter: 2021Q1

REPORT INFORMATION
  Report Type: Spontaneous
  Country: US (occurrence: US)
  Receive Date: 20210218
  Receipt Date: 20210218
  Transmission Date: 20210420
  Serious: No
  Sender: FDA-Public Use
  Company Number: US-SA-2021SA051404

PATIENT
  Age: 67 Year
  Sex: Female

DRUGS (2)
  1. AUBAGIO [Suspect]
     Active Substance: TERIFLUNOMIDE
     Indication: MULTIPLE SCLEROSIS
  2. TECFIDERA [Suspect]
     Active Substance: DIMETHYL FUMARATE
     Dosage: UNK

REACTIONS (8)
  - COVID-19 [Recovering/Resolving]
  - SARS-CoV-2 test positive [Recovering/Resolving]
  - Asthenia [Recovering/Resolving]
  - Oxygen saturation abnormal [Recovering/Resolving]
  - Fatigue [Recovering/Resolving]
  - Drug intolerance [Unknown]
  - Urticaria [Recovered/Resolved]
  - Dizziness [Recovering/Resolving]

NARRATIVE: CASE EVENT DATE: 2014
